FAERS Safety Report 5568586-1 (Version None)
Quarter: 2007Q4

REPORT INFORMATION
  Report Type: 
  Country: None (occurrence: None)
  Receive Date: 20071220
  Receipt Date: 20071205
  Transmission Date: 20080405
  Serious: Yes (Other)
  Sender: FDA-Public Use
  Company Number: HK-MERCK-0712HKG00007

PATIENT
  Age: 68 Year
  Sex: Female

DRUGS (4)
  1. FOSAMAX [Suspect]
     Indication: OSTEOPOROSIS
     Route: 048
     Dates: start: 20030101
  2. CALCIUM (UNSPECIFIED) [Concomitant]
     Indication: ROUTINE HEALTH MAINTENANCE
     Route: 065
  3. ANALGESIC OR ANESTHETIC (UNSPECIFIED) [Concomitant]
     Indication: BACK PAIN
     Route: 065
  4. ANALGESIC OR ANESTHETIC (UNSPECIFIED) [Concomitant]
     Indication: ARTHRALGIA
     Route: 065

REACTIONS (1)
  - OSTEONECROSIS [None]
